FAERS Safety Report 10182539 (Version 1)
Quarter: 2014Q2

REPORT INFORMATION
  Report Type: Spontaneous
  Country: US (occurrence: None)
  Receive Date: 20140519
  Receipt Date: 20140519
  Transmission Date: 20141212
  Serious: No
  Sender: FDA-Public Use
  Company Number: None

PATIENT
  Age: 56 Year
  Sex: Female
  Weight: 74.84 kg

DRUGS (1)
  1. METFORMIN [Suspect]
     Indication: TYPE 2 DIABETES MELLITUS
     Dosage: 2 PILLS TWICE DAILY?TWICE DAILY?TAKEN BY MOUTH
     Route: 048

REACTIONS (5)
  - Blood glucose increased [None]
  - Glycosylated haemoglobin increased [None]
  - Medication residue present [None]
  - Vomiting [None]
  - Drug ineffective [None]
